FAERS Safety Report 17546308 (Version 2)
Quarter: 2020Q1

REPORT INFORMATION
  Report Type: Spontaneous
  Country: JP (occurrence: JP)
  Receive Date: 20200316
  Receipt Date: 20200327
  Transmission Date: 20200409
  Serious: Yes (Other)
  Sender: FDA-Public Use
  Company Number: JP-ABBVIE-20K-087-3318660-00

PATIENT
  Age: 69 Year
  Sex: Male

DRUGS (2)
  1. KALETRA [Suspect]
     Active Substance: LOPINAVIR\RITONAVIR
     Indication: CORONA VIRUS INFECTION
     Dosage: (800/200 MG)
     Route: 048
  2. HYDROXYCHLOROQUINE SULFATE. [Concomitant]
     Active Substance: HYDROXYCHLOROQUINE SULFATE
     Indication: CORONA VIRUS INFECTION
     Dosage: ENDED ON DAY 9
     Route: 048

REACTIONS (4)
  - Respiratory failure [Recovering/Resolving]
  - Renal disorder [Unknown]
  - Blood bilirubin increased [Unknown]
  - Off label use [Unknown]
